FAERS Safety Report 8530402-3 (Version None)
Quarter: 2012Q3

REPORT INFORMATION
  Report Type: 
  Country: None (occurrence: None)
  Receive Date: 20120723
  Receipt Date: 20120717
  Transmission Date: 20120928
  Serious: Yes (Other)
  Sender: FDA-Public Use
  Company Number: CO-PFIZER INC-2012152261

PATIENT
  Age: 50 Year
  Sex: Female

DRUGS (5)
  1. GLUCOSAMINE [Concomitant]
     Indication: BONE DISORDER
     Dosage: UNK
     Route: 048
  2. LYRICA [Suspect]
     Indication: SPINAL PAIN
     Dosage: 75 MG, UNK
     Route: 048
     Dates: start: 20120301, end: 20120410
  3. OMEPRAZOLE [Concomitant]
     Indication: GASTRITIS
     Dosage: 20 MG, TWICE PER DAY
     Route: 048
  4. OMEGA [Concomitant]
     Dosage: UNK
  5. LINSEED [Concomitant]
     Dosage: UNK

REACTIONS (1)
  - NO ADVERSE EVENT [None]
